FAERS Safety Report 23799330 (Version 5)
Quarter: 2024Q3

REPORT INFORMATION
  Report Type: Spontaneous
  Country: US (occurrence: US)
  Receive Date: 20240430
  Receipt Date: 20240904
  Transmission Date: 20241016
  Serious: No
  Sender: PFIZER
  Company Number: US-PFIZER INC-202400095825

PATIENT
  Age: 75 Year
  Sex: Male
  Weight: 124.74 kg

DRUGS (2)
  1. GENOTROPIN [Suspect]
     Active Substance: SOMATROPIN
     Indication: Craniocerebral injury
     Dosage: 0.2 MG, DAILY
     Dates: start: 202403
  2. GENOTROPIN [Suspect]
     Active Substance: SOMATROPIN
     Indication: Hypothalamo-pituitary disorder
     Dosage: UNK

REACTIONS (6)
  - Device failure [Unknown]
  - Device leakage [Unknown]
  - Device dislocation [Unknown]
  - Product packaging quantity issue [Unknown]
  - Device issue [Unknown]
  - Drug dose omission by device [Unknown]

NARRATIVE: CASE EVENT DATE: 20240425
